FAERS Safety Report 20167415 (Version 5)
Quarter: 2022Q1

REPORT INFORMATION
  Report Type: Spontaneous
  Country: JP (occurrence: JP)
  Receive Date: 20211209
  Receipt Date: 20220324
  Transmission Date: 20220423
  Serious: Yes (Other)
  Sender: FDA-Public Use
  Company Number: JP-IRONWOOD PHARMACEUTICALS, INC.-IRWD2021002402

PATIENT
  Sex: Male

DRUGS (18)
  1. LINACLOTIDE [Suspect]
     Active Substance: LINACLOTIDE
     Indication: Product used for unknown indication
     Dosage: 0.25 MG, QD
     Route: 048
  2. ROXADUSTAT [Suspect]
     Active Substance: ROXADUSTAT
     Indication: Nephrogenic anaemia
     Dosage: 100 MG, THRICE WEEKLY
     Route: 048
     Dates: start: 20210917, end: 20211126
  3. ISOSORBIDE DINITRATE [Concomitant]
     Active Substance: ISOSORBIDE DINITRATE
     Dosage: 20 MG, QD, ACTUAL: 20 MG/DAY, UNKNOWN FREQ
     Route: 048
  4. METOPROLOL [Concomitant]
     Active Substance: METOPROLOL
     Dosage: 20 MG, QD, ACTUAL: 20 MG/DAY, UNKNOWN FREQ
     Route: 048
  5. ASPIRIN\LANSOPRAZOLE [Concomitant]
     Active Substance: ASPIRIN\LANSOPRAZOLE
     Dosage: UNK UNK, UNKNOWN FREQ.
     Route: 048
  6. FEBUXOSTAT [Concomitant]
     Active Substance: FEBUXOSTAT
     Dosage: 20 MG, QD, ACTUAL: 20 MG/DAY, UNKNOWN FREQ
     Route: 048
  7. ROSUVASTATIN CALCIUM [Concomitant]
     Active Substance: ROSUVASTATIN CALCIUM
     Dosage: 5 MG, QD, ACTUAL: 5 MG/DAY, UNKNOWN FREQ
     Route: 048
  8. AZOSEMIDE [Concomitant]
     Active Substance: AZOSEMIDE
     Dosage: 30 MG, QD, ACTUAL: 30 MG/DAY, UNKNOWN FREQ
     Route: 048
  9. EPLERENONE [Concomitant]
     Active Substance: EPLERENONE
     Dosage: 50 MG, QD, ACTUAL: 50 MG/DAY, UNKNOWN FREQ.
     Route: 048
  10. EMPAGLIFLOZIN\LINAGLIPTIN [Concomitant]
     Active Substance: EMPAGLIFLOZIN\LINAGLIPTIN
     Dosage: UNK UNK, UNKNOWN FREQ.
     Route: 048
  11. CARDENALIN [Concomitant]
     Active Substance: DOXAZOSIN MESYLATE
     Dosage: 2 MG, QD, ACTUAL: 2 MG/DAY, UNKNOWN FREQ.
     Route: 048
  12. ENTRESTO [Concomitant]
     Active Substance: SACUBITRIL\VALSARTAN
     Dosage: 200 MG, QD, ACTUAL: 200 MG/DAY, UNKNOWN FREQ.
     Route: 048
  13. ENTRESTO [Concomitant]
     Active Substance: SACUBITRIL\VALSARTAN
     Dosage: 100 UNK, UNK
     Route: 065
  14. UNSPECIFIED INGREDIENT [Concomitant]
     Active Substance: UNSPECIFIED INGREDIENT
     Dosage: 40 MG, QD, ACTUAL: 40 MG/DAY, UNKNOWN FREQ.
     Route: 048
  15. CALCIUM POLYSTYRENE SULFONATE [Concomitant]
     Active Substance: CALCIUM POLYSTYRENE SULFONATE
     Dosage: 25 G, QD, ACTUAL: 25 G/DAY, UNKNOWN FREQ.
     Route: 048
  16. NICORANDIL [Concomitant]
     Active Substance: NICORANDIL
     Dosage: 5 MG, QD, ACTUAL: 5 MG/DAY, UNKNOWN FREQ.
     Route: 048
  17. MICARDIS [Concomitant]
     Active Substance: TELMISARTAN
     Dosage: 40 UNK, UNK
     Route: 065
  18. DAPRODUSTAT [Concomitant]
     Active Substance: DAPRODUSTAT
     Dosage: UNK
     Route: 065

REACTIONS (3)
  - Haemorrhage subcutaneous [Unknown]
  - Platelet count decreased [Unknown]
  - Fibrin D dimer increased [Unknown]

NARRATIVE: CASE EVENT DATE: 20211126
